FAERS Safety Report 16108085 (Version 4)
Quarter: 2020Q1

REPORT INFORMATION
  Report Type: Report from Study
  Country: US (occurrence: US)
  Receive Date: 20190322
  Receipt Date: 20200109
  Transmission Date: 20200409
  Serious: Yes (Hospitalization)
  Sender: FDA-Public Use
  Company Number: US-ACTELION-A-NJ2018-181392

PATIENT
  Age: 64 Year
  Sex: Female

DRUGS (7)
  1. OPSUMIT [Suspect]
     Active Substance: MACITENTAN
     Indication: PULMONARY ARTERIAL HYPERTENSION
     Dosage: 10 MG, QD
     Route: 048
     Dates: start: 20190117
  2. ORENITRAM [Concomitant]
     Active Substance: TREPROSTINIL
  3. TADALAFIL. [Concomitant]
     Active Substance: TADALAFIL
  4. ELIQUIS [Concomitant]
     Active Substance: APIXABAN
  5. DILTIAZEM. [Concomitant]
     Active Substance: DILTIAZEM
  6. TORSEMIDE. [Concomitant]
     Active Substance: TORSEMIDE
     Dosage: UNK
     Dates: start: 20181113
  7. XARELTO [Concomitant]
     Active Substance: RIVAROXABAN

REACTIONS (5)
  - Hospitalisation [Unknown]
  - Fluid retention [Not Recovered/Not Resolved]
  - Cardiac failure congestive [Recovering/Resolving]
  - Pleural effusion [Unknown]
  - Pulmonary oedema [Recovering/Resolving]

NARRATIVE: CASE EVENT DATE: 20190311
